FAERS Safety Report 8450731-1 (Version None)
Quarter: 2012Q2

REPORT INFORMATION
  Report Type: 
  Country: None (occurrence: None)
  Receive Date: 20120620
  Receipt Date: 20120614
  Transmission Date: 20120825
  Serious: Yes (Other)
  Sender: FDA-Public Use
  Company Number: NL-PFIZER INC-2012143222

PATIENT
  Age: 71 Year
  Sex: Male

DRUGS (10)
  1. SELOKEEN [Concomitant]
     Dosage: 200 MG, UNK
  2. SPIRIVA [Concomitant]
     Dosage: 18 UG, UNK
  3. ATORVASTATIN CALCIUM [Suspect]
     Dosage: UNK
  4. OMEPRAZOLE [Concomitant]
     Dosage: 20 MG, UNK
  5. DESLORATADINE [Concomitant]
     Dosage: 5 MG, UNK
  6. SYMBICORT [Concomitant]
     Dosage: UNK
  7. ASCAL [Concomitant]
     Dosage: UNK
  8. LASIX [Concomitant]
     Dosage: 40 MG, UNK
  9. AVODART [Concomitant]
     Dosage: 0.5 MG, UNK
  10. MONO-CEDOCARD [Concomitant]
     Dosage: 100 MG, UNK

REACTIONS (2)
  - FACE OEDEMA [None]
  - PHARYNGEAL OEDEMA [None]
